FAERS Safety Report 5768358-9 (Version None)
Quarter: 2008Q2

REPORT INFORMATION
  Report Type: 
  Country: None (occurrence: None)
  Receive Date: 20080612
  Receipt Date: 20080314
  Transmission Date: 20081010
  Serious: No
  Sender: FDA-Public Use
  Company Number: US-ABBOTT-08P-163-0440042-00

PATIENT
  Sex: Male
  Weight: 95.45 kg

DRUGS (3)
  1. HUMIRA [Suspect]
     Indication: RHEUMATOID ARTHRITIS
     Route: 058
     Dates: start: 20071201
  2. IBUROFEN [Concomitant]
     Indication: ARTHRALGIA
     Route: 048
  3. TYLOX [Concomitant]
     Indication: PAIN
     Route: 048

REACTIONS (5)
  - ASTHENIA [None]
  - BACK PAIN [None]
  - MUSCULOSKELETAL PAIN [None]
  - NECK PAIN [None]
  - PAIN IN EXTREMITY [None]
